FAERS Safety Report 5123402-7 (Version None)
Quarter: 2006Q4

REPORT INFORMATION
  Report Type: 
  Country: None (occurrence: None)
  Receive Date: 20061004
  Receipt Date: 20060922
  Transmission Date: 20070319
  Serious: Yes (Other)
  Sender: FDA-Public Use
  Company Number: HQWYE146126SEP06

PATIENT
  Sex: Female

DRUGS (1)
  1. ETODOLAC [Suspect]
     Dosage: 400 MG 1X PER 1 DAY ORAL
     Route: 048
     Dates: start: 20060701, end: 20060801

REACTIONS (2)
  - GENERALISED ERYTHEMA [None]
  - PRURITUS [None]
